FAERS Safety Report 10140729 (Version 2)
Quarter: 2015Q1

REPORT INFORMATION
  Report Type: Other
  Country: US (occurrence: US)
  Receive Date: 20140429
  Receipt Date: 20150302
  Transmission Date: 20150720
  Serious: Yes (Hospitalization, Other)
  Sender: FDA-Public Use
  Company Number: US-GSKPPD-2014GSK041387

PATIENT
  Age: 51 Year
  Sex: Male

DRUGS (5)
  1. AVANDIA [Suspect]
     Active Substance: ROSIGLITAZONE MALEATE
     Indication: DIABETES MELLITUS
     Dosage: DATES OF AVANDIA USE COULD NOT BE CONFIRMED IN RECORDS REVIEWED.
     Route: 048
  2. ECOTRIN [Concomitant]
     Active Substance: ASPIRIN
  3. ACEON [Concomitant]
     Active Substance: PERINDOPRIL ERBUMINE
  4. TOPROL XL [Concomitant]
     Active Substance: METOPROLOL SUCCINATE
  5. AVALIDE [Concomitant]
     Active Substance: HYDROCHLOROTHIAZIDE\IRBESARTAN
     Dosage: UNIT DOSE 300 MG/12.5 MG

REACTIONS (2)
  - Myocardial infarction [Unknown]
  - Arteriosclerosis [Recovered/Resolved]

NARRATIVE: CASE EVENT DATE: 20040705
